FAERS Safety Report 6024150-1 (Version None)
Quarter: 2008Q4

REPORT INFORMATION
  Report Type: 
  Country: None (occurrence: None)
  Receive Date: 20081224
  Receipt Date: 20081211
  Transmission Date: 20090506
  Serious: Yes (Hospitalization)
  Sender: FDA-Public Use
  Company Number: KV200801364

PATIENT
  Age: 86 Year
  Sex: Female

DRUGS (3)
  1. ISOSORBIDE MONONITRATE [Suspect]
     Indication: HYPERTENSION
     Dosage: 30 MG,QD,ORAL
     Route: 048
     Dates: end: 20081101
  2. ANTIHYPERTENSIVES [Concomitant]
  3. CHOLESTEROL AND TRIGLYCERIDE REDUCERS [Concomitant]

REACTIONS (3)
  - BLOOD PRESSURE INCREASED [None]
  - CARDIAC DISORDER [None]
  - PRODUCT QUALITY ISSUE [None]
